FAERS Safety Report 8033499-2 (Version None)
Quarter: 2011Q4

REPORT INFORMATION
  Report Type: 
  Country: None (occurrence: None)
  Receive Date: 20111202
  Receipt Date: 20110126
  Transmission Date: 20120403
  Serious: Yes (Other)
  Sender: FDA-Public Use
  Company Number: WAES 0806USA08540

PATIENT
  Age: 56 Year
  Sex: Female
  Weight: 79.3795 kg

DRUGS (1)
  1. FOSAMAX [Suspect]
     Indication: OSTEOPOROSIS
     Dosage: 70 MG/UNK/PO
     Route: 048
     Dates: start: 20011005, end: 20060401

REACTIONS (38)
  - OEDEMA PERIPHERAL [None]
  - TOOTH FRACTURE [None]
  - RHEUMATOID ARTHRITIS [None]
  - GOUTY ARTHRITIS [None]
  - ORTHOPNOEA [None]
  - OSTEONECROSIS [None]
  - BONE DISORDER [None]
  - EXOSTOSIS [None]
  - PERIARTHRITIS [None]
  - OSTEOARTHRITIS [None]
  - TOOTH ABSCESS [None]
  - HYPERTENSION [None]
  - SKIN ULCER [None]
  - ABDOMINAL DISCOMFORT [None]
  - HYPOAESTHESIA [None]
  - LIMB INJURY [None]
  - POOR QUALITY SLEEP [None]
  - LIMB DEFORMITY [None]
  - DENTAL CARIES [None]
  - PNEUMONIA [None]
  - IMPAIRED HEALING [None]
  - BURSITIS [None]
  - FALL [None]
  - SENSITIVITY OF TEETH [None]
  - GINGIVAL DISORDER [None]
  - OSTEOMYELITIS [None]
  - PAIN IN JAW [None]
  - ARTHRALGIA [None]
  - GINGIVAL BLEEDING [None]
  - TENDONITIS [None]
  - DEVICE BREAKAGE [None]
  - EAR PAIN [None]
  - WEIGHT ABNORMAL [None]
  - SWELLING [None]
  - LIGAMENT SPRAIN [None]
  - ORAL INFECTION [None]
  - JOINT INJURY [None]
  - BLOOD CHOLESTEROL INCREASED [None]
